FAERS Safety Report 7073276-2 (Version None)
Quarter: 2010Q4

REPORT INFORMATION
  Report Type: 
  Country: None (occurrence: None)
  Receive Date: 20101029
  Receipt Date: 20100520
  Transmission Date: 20110411
  Serious: No
  Sender: FDA-Public Use
  Company Number: A0860610A

PATIENT
  Age: 73 Year
  Sex: Female

DRUGS (15)
  1. ADVAIR DISKUS 100/50 [Suspect]
     Indication: ASTHMA
     Dosage: 1PUFF TWICE PER DAY
     Route: 055
     Dates: start: 20100401, end: 20100405
  2. ADVAIR DISKUS 100/50 [Suspect]
     Dosage: 2PUFF TWICE PER DAY
     Route: 055
     Dates: start: 20100405, end: 20100411
  3. VERAMYST [Suspect]
     Indication: RHINITIS ALLERGIC
     Dosage: 4SPR PER DAY
     Route: 045
     Dates: start: 20100503, end: 20100510
  4. ZEASORB AF POWDER [Suspect]
     Indication: FUNGAL INFECTION
     Dosage: 1APP TWICE PER DAY
     Route: 061
     Dates: start: 20100511
  5. DIFLUCAN [Concomitant]
  6. PREMARIN [Concomitant]
  7. DYAZIDE [Concomitant]
  8. ATENOLOL [Concomitant]
  9. LOVASTATIN [Concomitant]
  10. ENALAPRIL MALEATE [Concomitant]
  11. GLIMEPIRIDE [Concomitant]
  12. OMEPRAZOLE [Concomitant]
  13. ASPIRIN [Concomitant]
  14. VITAMINS [Concomitant]
  15. METROGEL [Concomitant]

REACTIONS (4)
  - VULVOVAGINAL BURNING SENSATION [None]
  - VULVOVAGINAL DRYNESS [None]
  - VULVOVAGINAL ERYTHEMA [None]
  - VULVOVAGINAL MYCOTIC INFECTION [None]
